FAERS Safety Report 6356992-7 (Version None)
Quarter: 2009Q3

REPORT INFORMATION
  Report Type: 
  Country: None (occurrence: None)
  Receive Date: 20090915
  Receipt Date: 20090903
  Transmission Date: 20100115
  Serious: Yes (Other)
  Sender: FDA-Public Use
  Company Number: CN-JNJFOC-20090902548

PATIENT
  Age: 63 Year
  Sex: Female

DRUGS (2)
  1. INFLIXIMAB [Suspect]
     Indication: RHEUMATOID ARTHRITIS
     Dosage: AT 0, 2, 6 AND 14 WEEKS
     Route: 042
  2. METHOTREXATE [Concomitant]

REACTIONS (1)
  - LYMPH NODE TUBERCULOSIS [None]
